FAERS Safety Report 15356212 (Version 1)
Quarter: 2018Q3

REPORT INFORMATION
  Report Type: Spontaneous
  Country: MY (occurrence: MY)
  Receive Date: 20180906
  Receipt Date: 20180906
  Transmission Date: 20181010
  Serious: Yes (Other)
  Sender: FDA-Public Use
  Company Number: MY-PFIZER INC-2018302400

PATIENT
  Age: 2 Month
  Sex: Female

DRUGS (2)
  1. ACTINOMYCIN D [Suspect]
     Active Substance: DACTINOMYCIN
     Indication: CONGENITAL FIBROSARCOMA
     Dosage: UNK, CYCLIC
  2. VINCRISTINE SULFATE. [Suspect]
     Active Substance: VINCRISTINE SULFATE
     Indication: CONGENITAL FIBROSARCOMA
     Dosage: UNK, CYCLIC

REACTIONS (2)
  - Coagulopathy [Recovered/Resolved]
  - Tumour haemorrhage [Recovered/Resolved]
